FAERS Safety Report 21707710 (Version 1)
Quarter: 2022Q4

REPORT INFORMATION
  Report Type: Spontaneous
  Country: US (occurrence: US)
  Receive Date: 20221209
  Receipt Date: 20221209
  Transmission Date: 20230113
  Serious: No
  Sender: FDA-Public Use
  Company Number: US-BIOMARINAP-US-2022-146722

PATIENT

DRUGS (1)
  1. PALYNZIQ [Suspect]
     Active Substance: PEGVALIASE-PQPZ
     Indication: Product used for unknown indication
     Dosage: ,
     Route: 065

REACTIONS (7)
  - Peripheral swelling [Unknown]
  - Skin fissures [Unknown]
  - Glossodynia [Unknown]
  - Tongue rough [Unknown]
  - Alopecia [Unknown]
  - Erythema [Unknown]
  - Rash [Unknown]
